FAERS Safety Report 6040657-5 (Version None)
Quarter: 2009Q1

REPORT INFORMATION
  Report Type: 
  Country: None (occurrence: None)
  Receive Date: 20090116
  Receipt Date: 20080522
  Transmission Date: 20090719
  Serious: No
  Sender: FDA-Public Use
  Company Number: US-BRISTOL-MYERS SQUIBB COMPANY-14171284

PATIENT
  Age: 29 Year
  Sex: Female

DRUGS (3)
  1. ABILIFY [Suspect]
     Indication: BIPOLAR I DISORDER
     Route: 048
     Dates: start: 20080418, end: 20080424
  2. CELEXA [Suspect]
     Indication: DEPRESSION
     Dosage: ALSO GIVEN 20 MG.
     Dates: start: 20080418, end: 20080424
  3. PRAZSOIN HCL [Suspect]
     Indication: NIGHTMARE
     Dates: start: 20080418, end: 20080424

REACTIONS (2)
  - DYSTONIA [None]
  - TORTICOLLIS [None]
